FAERS Safety Report 15774545 (Version 1)
Quarter: 2018Q4

REPORT INFORMATION
  Report Type: Spontaneous
  Country: FR (occurrence: FR)
  Receive Date: 20181229
  Receipt Date: 20181229
  Transmission Date: 20190205
  Serious: Yes (Hospitalization)
  Sender: FDA-Public Use
  Company Number: FR-TEVA-2018-FR-992502

PATIENT
  Age: 50 Year
  Sex: Male
  Weight: 128 kg

DRUGS (11)
  1. VICTOZA [Suspect]
     Active Substance: LIRAGLUTIDE
     Indication: TYPE 2 DIABETES MELLITUS
     Dosage: 1.8 MILLIGRAM DAILY;
     Route: 058
     Dates: start: 2012, end: 20181129
  2. CLOMIPRAMINE (CHLORHYDRATE DE) [Concomitant]
     Active Substance: CLOMIPRAMINE HYDROCHLORIDE
  3. BISOCE [Concomitant]
     Active Substance: BISOPROLOL
  4. KARDEGIC [Concomitant]
     Active Substance: ASPIRIN DL-LYSINE
  5. ATORVASTATINE [Suspect]
     Active Substance: ATORVASTATIN
     Indication: HYPERCHOLESTEROLAEMIA
     Dosage: 80 MILLIGRAM DAILY;
     Route: 048
     Dates: end: 20181129
  6. EZETROL 10 MG, COMPRIM? [Suspect]
     Active Substance: EZETIMIBE
     Indication: HYPERCHOLESTEROLAEMIA
     Dosage: 1 DOSAGE FORMS DAILY;
     Route: 048
     Dates: end: 20181129
  7. ACUPAN [Concomitant]
     Active Substance: NEFOPAM HYDROCHLORIDE
  8. ALPRAZOLAM. [Concomitant]
     Active Substance: ALPRAZOLAM
  9. TRILEPTAL [Concomitant]
     Active Substance: OXCARBAZEPINE
  10. DOLIPRANE [Concomitant]
     Active Substance: ACETAMINOPHEN
  11. TOUJEO [Concomitant]
     Active Substance: INSULIN GLARGINE

REACTIONS (1)
  - Pancreatitis acute [Recovering/Resolving]

NARRATIVE: CASE EVENT DATE: 20181129
